FAERS Safety Report 19005002 (Version 2)
Quarter: 2021Q3

REPORT INFORMATION
  Report Type: Spontaneous
  Country: US (occurrence: US)
  Receive Date: 20210313
  Receipt Date: 20210902
  Transmission Date: 20211014
  Serious: Yes (Hospitalization, Other)
  Sender: FDA-Public Use
  Company Number: US-LUPIN PHARMACEUTICALS INC.-2021-03156

PATIENT
  Sex: Male

DRUGS (5)
  1. NIFEDIPINE. [Suspect]
     Active Substance: NIFEDIPINE
     Indication: PRE-ECLAMPSIA
     Dosage: UNK
     Route: 064
  2. LABETALOL [Suspect]
     Active Substance: LABETALOL\LABETALOL HYDROCHLORIDE
     Indication: PRE-ECLAMPSIA
     Dosage: UNK
     Route: 064
  3. MAGNESIUM [Suspect]
     Active Substance: MAGNESIUM
     Indication: PRE-ECLAMPSIA
     Dosage: UNK
     Route: 064
  4. BETAMETHASONE. [Suspect]
     Active Substance: BETAMETHASONE
     Indication: PRODUCT USED FOR UNKNOWN INDICATION
     Dosage: UNK,THE MOTHER ADMINISTERED TWO DOSES 24 H APART, 48 HOURS PRIOR TO THE CAESAREAN SECTION
     Route: 064
  5. HYDRALAZINE [Suspect]
     Active Substance: HYDRALAZINE HYDROCHLORIDE
     Indication: PRE-ECLAMPSIA
     Dosage: UNK
     Route: 064

REACTIONS (4)
  - Ulna fracture [Recovered/Resolved]
  - Premature baby [None]
  - Rickets [Unknown]
  - Foetal exposure during pregnancy [Unknown]
